FAERS Safety Report 24846447 (Version 1)
Quarter: 2025Q1

REPORT INFORMATION
  Report Type: Other
  Country: FR (occurrence: FR)
  Receive Date: 20250115
  Receipt Date: 20250115
  Transmission Date: 20250409
  Serious: Yes (Hospitalization)
  Sender: INCYTE
  Company Number: None

PATIENT

DRUGS (5)
  1. RUXOLITINIB [Suspect]
     Active Substance: RUXOLITINIB
     Indication: Biliary tract disorder
     Route: 048
     Dates: start: 20170118, end: 20240422
  2. MEKINIST [Suspect]
     Active Substance: TRAMETINIB DIMETHYL SULFOXIDE
     Indication: Biliary tract disorder
     Dosage: 1 MG, QD
     Route: 048
     Dates: start: 20240320
  3. LOVENOX [Suspect]
     Active Substance: ENOXAPARIN SODIUM
     Indication: Biliary tract disorder
     Dosage: 7000 IU, Q12H (CURATIF)
     Route: 051
     Dates: start: 20240408, end: 20240412
  4. LOVENOX [Suspect]
     Active Substance: ENOXAPARIN SODIUM
     Dosage: 1 DOSAGE FORM, Q12H (PR?VENTIF)
     Route: 051
     Dates: start: 20240427, end: 20240506
  5. LOVENOX [Suspect]
     Active Substance: ENOXAPARIN SODIUM
     Dosage: 7000 IU, Q12H (CURATIF)
     Route: 051
     Dates: start: 20240507

REACTIONS (2)
  - Haemobilia [Not Recovered/Not Resolved]
  - Subcapsular hepatic haematoma [Recovering/Resolving]

NARRATIVE: CASE EVENT DATE: 20240412
